FAERS Safety Report 9580067 (Version 1)
Quarter: 2013Q3

REPORT INFORMATION
  Report Type: Spontaneous
  Country: AU (occurrence: None)
  Receive Date: 20130930
  Receipt Date: 20130930
  Transmission Date: 20140515
  Serious: Yes (Other)
  Sender: FDA-Public Use
  Company Number: 2013P1019473

PATIENT
  Age: 73 Year
  Sex: Male

DRUGS (12)
  1. PHENYTOIN [Suspect]
     Indication: VENTRICULAR TACHYCARDIA
     Route: 042
  2. PHENYTOIN [Suspect]
     Indication: DISEASE RECURRENCE
     Route: 042
  3. LIDOCAINE [Suspect]
     Indication: VENTRICULAR TACHYCARDIA
     Dosage: 2 MG/ MIN; IV
     Route: 042
  4. LIDOCAINE [Suspect]
     Indication: DISEASE RECURRENCE
     Dosage: 2 MG/ MIN; IV
     Route: 042
  5. AMIODARONE [Concomitant]
  6. CARVEDILOL [Concomitant]
  7. SPIRONOLACTONE [Concomitant]
  8. FUROSEMIDE [Concomitant]
  9. IRBESARTAN [Concomitant]
  10. ATORVASTATIN [Concomitant]
  11. UNSPECIFIED MAGNESIUM SUPLEMENT [Concomitant]
  12. WARFARIN [Concomitant]

REACTIONS (11)
  - Confusional state [None]
  - Paraesthesia oral [None]
  - Ventricular tachycardia [None]
  - Condition aggravated [None]
  - Nystagmus [None]
  - Somnolence [None]
  - Hypotension [None]
  - Bradycardia [None]
  - Electrocardiogram QRS complex prolonged [None]
  - Toxicity to various agents [None]
  - Device capturing issue [None]
